FAERS Safety Report 7427328-5 (Version None)
Quarter: 2011Q2

REPORT INFORMATION
  Report Type: 
  Country: None (occurrence: None)
  Receive Date: 20110420
  Receipt Date: 20110418
  Transmission Date: 20111010
  Serious: Yes (Death)
  Sender: FDA-Public Use
  Company Number: PHHY2011CN32008

PATIENT
  Sex: Male

DRUGS (3)
  1. SANDIMMUNE [Suspect]
     Indication: RENAL TRANSPLANT
     Dosage: 25 MG, UNK
  2. RAPAMUNE [Concomitant]
     Indication: RENAL TRANSPLANT
     Dosage: 1 MG, UNK
     Route: 048
  3. CELLCEPT [Concomitant]
     Indication: RENAL TRANSPLANT
     Dosage: 250 MG, UNK
     Route: 048
     Dates: start: 20040701

REACTIONS (1)
  - LUNG NEOPLASM MALIGNANT [None]
